FAERS Safety Report 9905338 (Version 1)
Quarter: 2014Q1

REPORT INFORMATION
  Report Type: Spontaneous
  Country: US (occurrence: US)
  Receive Date: 20140218
  Receipt Date: 20140218
  Transmission Date: 20141002
  Serious: Yes (Other)
  Sender: FDA-Public Use
  Company Number: US-SA-2014SA017641

PATIENT
  Sex: Female

DRUGS (3)
  1. ALLEGRA 24 HOUR [Suspect]
     Indication: NASOPHARYNGITIS
     Route: 048
  2. ALLEGRA 24 HOUR [Suspect]
     Indication: NASAL CONGESTION
     Route: 048
  3. ALLEGRA 24 HOUR [Suspect]
     Indication: RHINORRHOEA
     Route: 048

REACTIONS (4)
  - Arthropathy [Unknown]
  - Mobility decreased [Unknown]
  - Drug ineffective [Unknown]
  - Nasopharyngitis [Unknown]
